FAERS Safety Report 9677587 (Version 1)
Quarter: 2013Q4

REPORT INFORMATION
  Report Type: Spontaneous
  Country: US (occurrence: US)
  Receive Date: 20131108
  Receipt Date: 20131108
  Transmission Date: 20140711
  Serious: Yes (Other)
  Sender: FDA-Public Use
  Company Number: US-SA-2013SA111960

PATIENT
  Age: 65 Year
  Sex: Female
  Weight: 61.8 kg

DRUGS (2)
  1. FABRAZYME [Suspect]
     Indication: FABRY^S DISEASE
     Dosage: DOSE : 60 MG
     Route: 042
  2. LYRICA [Concomitant]

REACTIONS (1)
  - Multiple sclerosis [Unknown]
